FAERS Safety Report 8363496-9 (Version None)
Quarter: 2012Q2

REPORT INFORMATION
  Report Type: 
  Country: None (occurrence: None)
  Receive Date: 20120516
  Receipt Date: 20120502
  Transmission Date: 20120825
  Serious: Yes (Death, Life-Threatening, Hospitalization, Other)
  Sender: FDA-Public Use
  Company Number: US-MYLANLABS-2009AC000233

PATIENT
  Age: 59 Year
  Sex: Male
  Weight: 97.52 kg

DRUGS (12)
  1. MORPHINE [Concomitant]
  2. MEDROL [Concomitant]
  3. EPINEPHRINE [Concomitant]
  4. DIGOXIN [Suspect]
     Route: 048
     Dates: start: 20051107, end: 20070212
  5. LASIX [Concomitant]
  6. VERSED [Concomitant]
  7. ATIVAN [Concomitant]
  8. INSULIN [Concomitant]
  9. ASPIRIN [Concomitant]
  10. LIDOCAINE [Concomitant]
  11. PHENERGAN [Concomitant]
  12. NITROGLYCERIN [Concomitant]

REACTIONS (40)
  - INJURY [None]
  - DYSPNOEA [None]
  - INTRACARDIAC THROMBUS [None]
  - BLADDER CATHETERISATION [None]
  - GASTROINTESTINAL DISORDER [None]
  - EMOTIONAL DISTRESS [None]
  - HEART RATE INCREASED [None]
  - HYPERKALAEMIA [None]
  - LABORATORY TEST ABNORMAL [None]
  - RESPIRATORY TRACT CONGESTION [None]
  - DEATH [None]
  - CARDIOVERSION [None]
  - PULSELESS ELECTRICAL ACTIVITY [None]
  - CHEST X-RAY ABNORMAL [None]
  - ECONOMIC PROBLEM [None]
  - PAIN IN EXTREMITY [None]
  - PERIPHERAL VASCULAR DISORDER [None]
  - SINUS TACHYCARDIA [None]
  - ENDOTRACHEAL INTUBATION [None]
  - BRONCHITIS [None]
  - CARDIOMEGALY [None]
  - COUGH [None]
  - CARDIAC ARREST [None]
  - CARDIAC FAILURE CONGESTIVE [None]
  - ATELECTASIS [None]
  - PERIPHERAL EMBOLISM [None]
  - CYANOSIS [None]
  - ECHOCARDIOGRAM ABNORMAL [None]
  - EJECTION FRACTION DECREASED [None]
  - LIVER FUNCTION TEST ABNORMAL [None]
  - OEDEMA PERIPHERAL [None]
  - ILL-DEFINED DISORDER [None]
  - HOSPITALISATION [None]
  - VENTRICULAR TACHYCARDIA [None]
  - ACUTE MYOCARDIAL INFARCTION [None]
  - RENAL FAILURE ACUTE [None]
  - ELECTROCARDIOGRAM ABNORMAL [None]
  - PERIPHERAL ISCHAEMIA [None]
  - BRAIN NATRIURETIC PEPTIDE INCREASED [None]
  - CENTRAL VENOUS CATHETERISATION [None]
